FAERS Safety Report 8475725-1 (Version None)
Quarter: 2012Q2

REPORT INFORMATION
  Report Type: 
  Country: None (occurrence: None)
  Receive Date: 20120628
  Receipt Date: 20120620
  Transmission Date: 20120825
  Serious: Yes (Hospitalization)
  Sender: FDA-Public Use
  Company Number: FR-GLAXOSMITHKLINE-B0809419A

PATIENT
  Sex: Female

DRUGS (1)
  1. LAMICTAL [Suspect]
     Indication: BIPOLAR DISORDER
     Route: 048
     Dates: start: 20120507, end: 20120518

REACTIONS (9)
  - PRURITUS [None]
  - INAPPROPRIATE SCHEDULE OF DRUG ADMINISTRATION [None]
  - TOXIC SKIN ERUPTION [None]
  - RASH MACULO-PAPULAR [None]
  - INCORRECT DOSE ADMINISTERED [None]
  - BLISTER [None]
  - WOUND SECRETION [None]
  - PHOTOSENSITIVITY REACTION [None]
  - SKIN ULCER [None]
